FAERS Safety Report 17055214 (Version 4)
Quarter: 2020Q4

REPORT INFORMATION
  Report Type: Spontaneous
  Country: US (occurrence: US)
  Receive Date: 20191120
  Receipt Date: 20201130
  Transmission Date: 20210113
  Serious: No
  Sender: FDA-Public Use
  Company Number: NVSC2019US041857

PATIENT
  Sex: Male

DRUGS (3)
  1. IRINOTECAN [Suspect]
     Active Substance: IRINOTECAN
     Indication: PRODUCT USED FOR UNKNOWN INDICATION
     Dosage: UNK
     Route: 065
  2. MEKINIST [Suspect]
     Active Substance: TRAMETINIB DIMETHYL SULFOXIDE
     Indication: BRAIN NEOPLASM MALIGNANT
     Dosage: 0.5 MG (TAKE 0.5 MG (1 TABLET ) BY MOUTH MONDAY THROUGH FRIDAY, AND 1 MG (2 TABLETS ) SATURDAY AND)
     Route: 048
  3. MEKINIST [Suspect]
     Active Substance: TRAMETINIB DIMETHYL SULFOXIDE
     Dosage: 0.5 MG (TAKE 0.5 MG (1 TABLET ) BY MOUTH MONDAY THROUGH FRIDAY, AND 1 MG (2 TABLETS ) SATURDAY AND)
     Route: 048

REACTIONS (7)
  - Dermatitis contact [Unknown]
  - Rash [Recovered/Resolved]
  - Diarrhoea [Unknown]
  - Product use in unapproved indication [Unknown]
  - Product dose omission issue [Unknown]
  - Blister [Unknown]
  - Vomiting [Unknown]
